FAERS Safety Report 5388165-9 (Version None)
Quarter: 2007Q3

REPORT INFORMATION
  Report Type: 
  Country: None (occurrence: None)
  Receive Date: 20070716
  Receipt Date: 20070104
  Transmission Date: 20080115
  Serious: No
  Sender: FDA-Public Use
  Company Number: A0633715A

PATIENT
  Age: 36 Year
  Sex: Male

DRUGS (1)
  1. NICORETTE [Suspect]
     Dates: start: 20061228, end: 20061228

REACTIONS (8)
  - APPLICATION SITE COLD FEELING [None]
  - DRUG INEFFECTIVE [None]
  - ERUCTATION [None]
  - HICCUPS [None]
  - NICOTINE DEPENDENCE [None]
  - ORAL DISCOMFORT [None]
  - PARAESTHESIA ORAL [None]
  - VOMITING [None]
